FAERS Safety Report 6937631-0 (Version None)
Quarter: 2010Q3

REPORT INFORMATION
  Report Type: 
  Country: None (occurrence: None)
  Receive Date: 20100823
  Receipt Date: 20100713
  Transmission Date: 20110219
  Serious: Yes (Hospitalization, Other)
  Sender: FDA-Public Use
  Company Number: GB-GENENTECH-304384

PATIENT
  Sex: Male

DRUGS (1)
  1. XOLAIR [Suspect]
     Indication: ASTHMA
     Dosage: 450 MG, UNK
     Route: 058

REACTIONS (1)
  - MYOCARDIAL INFARCTION [None]
